FAERS Safety Report 15457848 (Version 2)
Quarter: 2019Q1

REPORT INFORMATION
  Report Type: Spontaneous
  Country: US (occurrence: US)
  Receive Date: 20181003
  Receipt Date: 20190226
  Transmission Date: 20190417
  Serious: Yes (Other)
  Sender: FDA-Public Use
  Company Number: US-ROCHE-2084257

PATIENT
  Age: 55 Year
  Sex: Female
  Weight: 63.56 kg

DRUGS (2)
  1. PERJETA [Suspect]
     Active Substance: PERTUZUMAB
     Indication: HER-2 POSITIVE BREAST CANCER
     Route: 042
     Dates: start: 20180209, end: 201812
  2. HERCEPTIN [Suspect]
     Active Substance: TRASTUZUMAB
     Indication: HER-2 POSITIVE BREAST CANCER
     Route: 042
     Dates: start: 20180209

REACTIONS (17)
  - Sensory disturbance [Not Recovered/Not Resolved]
  - Muscle spasms [Unknown]
  - Skin laceration [Not Recovered/Not Resolved]
  - Infection [Not Recovered/Not Resolved]
  - Sensitive skin [Not Recovered/Not Resolved]
  - Influenza like illness [Unknown]
  - Neck pain [Not Recovered/Not Resolved]
  - Pain [Not Recovered/Not Resolved]
  - Nausea [Recovered/Resolved]
  - Vomiting [Unknown]
  - Scratch [Recovering/Resolving]
  - Pain of skin [Not Recovered/Not Resolved]
  - Bite [Not Recovered/Not Resolved]
  - Pruritus [Not Recovered/Not Resolved]
  - Skin irritation [Not Recovered/Not Resolved]
  - Hair growth abnormal [Not Recovered/Not Resolved]
  - Feeding disorder [Unknown]

NARRATIVE: CASE EVENT DATE: 20180209
